FAERS Safety Report 24416849 (Version 1)
Quarter: 2024Q4

REPORT INFORMATION
  Report Type: Spontaneous
  Country: US (occurrence: US)
  Receive Date: 20241009
  Receipt Date: 20241009
  Transmission Date: 20250115
  Serious: No
  Sender: LUNDBECK
  Company Number: US-LUNDBECK-DKLU4004604

PATIENT

DRUGS (21)
  1. VYEPTI [Suspect]
     Active Substance: EPTINEZUMAB-JJMR
     Indication: Migraine
     Dosage: 100 MILLIGRAM
     Route: 041
     Dates: start: 20231214, end: 20240313
  2. VYEPTI [Suspect]
     Active Substance: EPTINEZUMAB-JJMR
     Dosage: 300 MILLIGRAM
     Route: 041
     Dates: start: 20240314
  3. AMITRIPTYLINE HYDROCHLORIDE [Concomitant]
     Active Substance: AMITRIPTYLINE HYDROCHLORIDE
     Indication: Product used for unknown indication
     Route: 048
  4. IRBESARTAN [Concomitant]
     Active Substance: IRBESARTAN
     Indication: Product used for unknown indication
     Route: 048
  5. ASPIRIN [Concomitant]
     Active Substance: ASPIRIN
     Route: 048
  6. ATORVASTATIN CALCIUM [Concomitant]
     Active Substance: ATORVASTATIN CALCIUM
     Route: 048
  7. ACETAMINOPHEN\BUTALBITAL\CAFFEINE [Concomitant]
     Active Substance: ACETAMINOPHEN\BUTALBITAL\CAFFEINE
     Route: 048
  8. COQ10 [CONJUGATED LINOLEIC ACID;LINUM USITATISSIMUM SEED OIL;UBIDECARE [Concomitant]
     Route: 048
  9. IRON [Concomitant]
     Active Substance: IRON
     Route: 048
  10. DICYCLOMINE HYDROCHLORIDE [Concomitant]
     Active Substance: DICYCLOMINE HYDROCHLORIDE
     Route: 048
  11. EMGALITY [Concomitant]
     Active Substance: GALCANEZUMAB-GNLM
     Route: 058
  12. MAGNESIUM GLUCONATE [Concomitant]
     Active Substance: MAGNESIUM GLUCONATE
     Route: 048
  13. OLMESARTAN MEDOXOMIL [Concomitant]
     Active Substance: OLMESARTAN MEDOXOMIL
     Route: 048
  14. PANTOPRAZOLE SODIUM [Concomitant]
     Active Substance: PANTOPRAZOLE SODIUM
     Route: 048
  15. QULIPTA [Concomitant]
     Active Substance: ATOGEPANT
     Route: 048
  16. SUMATRIPTAN SUCCINATE [Concomitant]
     Active Substance: SUMATRIPTAN SUCCINATE
     Route: 048
  17. TOPIRAMATE [Concomitant]
     Active Substance: TOPIRAMATE
     Route: 048
  18. UBRELVY [Concomitant]
     Active Substance: UBROGEPANT
     Route: 048
  19. VITAMIN B12 [Concomitant]
     Active Substance: CYANOCOBALAMIN
     Route: 048
  20. VITAMIN D3 [Concomitant]
     Active Substance: CHOLECALCIFEROL
     Route: 048
  21. VOQUEZNA [Concomitant]
     Active Substance: VONOPRAZAN FUMARATE
     Route: 048

REACTIONS (1)
  - Hypertension [Recovering/Resolving]
